FAERS Safety Report 5424243-3 (Version None)
Quarter: 2007Q3

REPORT INFORMATION
  Report Type: 
  Country: None (occurrence: None)
  Receive Date: 20070822
  Receipt Date: 20070807
  Transmission Date: 20080115
  Serious: Yes (Life-Threatening, Hospitalization)
  Sender: FDA-Public Use
  Company Number: 109557ISR

PATIENT
  Age: 24 Year
  Sex: Female

DRUGS (1)
  1. NIFEDIPINE [Suspect]
     Indication: TOCOLYSIS
     Dosage: 60 MG (20 MG, 3 IN 1 D) ORAL; 30 MG (30 MG, 1 IN 1 D) ORAL
     Route: 048

REACTIONS (12)
  - DIZZINESS [None]
  - DRUG EXPOSURE DURING PREGNANCY [None]
  - FLUSHING [None]
  - HEADACHE [None]
  - HYPOTENSION [None]
  - INTRA-UTERINE DEATH [None]
  - NAUSEA [None]
  - PALPITATIONS [None]
  - RESUSCITATION [None]
  - TACHYCARDIA [None]
  - VISUAL DISTURBANCE [None]
  - VOMITING [None]
